FAERS Safety Report 9934929 (Version 4)
Quarter: 2014Q2

REPORT INFORMATION
  Report Type: Report from Study
  Country: JP (occurrence: JP)
  Receive Date: 20140228
  Receipt Date: 20140509
  Transmission Date: 20141212
  Serious: Yes (Hospitalization, Other)
  Sender: FDA-Public Use
  Company Number: JP-ABBVIE-14P-087-1206847-00

PATIENT
  Age: 46 Year
  Sex: Female
  Weight: 54 kg

DRUGS (2)
  1. LUPRON DEPOT [Suspect]
     Indication: BREAST CANCER FEMALE
     Route: 058
     Dates: start: 20130123, end: 20131218
  2. NOLVADEX-20 [Concomitant]
     Indication: BREAST CANCER
     Route: 048
     Dates: start: 20130123, end: 20140224

REACTIONS (1)
  - Interstitial lung disease [Recovered/Resolved]
